FAERS Safety Report 9626963 (Version 1)
Quarter: 2013Q4

REPORT INFORMATION
  Report Type: Spontaneous
  Country: US (occurrence: None)
  Receive Date: 20131011
  Receipt Date: 20131011
  Transmission Date: 20140711
  Serious: Yes (Hospitalization, Disabling, Other)
  Sender: FDA-Public Use
  Company Number: AUR-APL-2013-08360

PATIENT
  Age: 49 Year
  Sex: Female

DRUGS (5)
  1. AMOXICILLIN [Suspect]
     Indication: PSORIASIS
     Dates: start: 20090306
  2. PANTOPRAZOLE [Suspect]
     Indication: PRODUCT USED FOR UNKNOWN INDICATION
  3. IBUPROFEN [Suspect]
     Indication: PRODUCT USED FOR UNKNOWN INDICATION
     Dates: start: 20090404, end: 20090504
  4. VANCOMYCIN [Concomitant]
     Indication: STAPHYLOCOCCAL INFECTION
     Route: 042
  5. LEVAQUIN [Suspect]
     Indication: STAPHYLOCOCCAL INFECTION
     Route: 042
     Dates: start: 20090314

REACTIONS (23)
  - Stevens-Johnson syndrome [None]
  - Anaemia [None]
  - Diarrhoea [None]
  - Influenza [None]
  - Cardiac valve disease [None]
  - Abasia [None]
  - Impaired work ability [None]
  - Gastroenteritis [None]
  - Bacterial infection [None]
  - Urinary tract infection [None]
  - Dehydration [None]
  - Cellulitis [None]
  - Toxic epidermal necrolysis [None]
  - Asthenia [None]
  - Renal failure acute [None]
  - Cardiac failure congestive [None]
  - Subarachnoid haemorrhage [None]
  - Haemodialysis [None]
  - Sepsis [None]
  - Catheter site infection [None]
  - Medical device complication [None]
  - Renal failure chronic [None]
  - Haemorrhagic stroke [None]
